FAERS Safety Report 5618789-2 (Version None)
Quarter: 2008Q1

REPORT INFORMATION
  Report Type: 
  Country: None (occurrence: None)
  Receive Date: 20080207
  Receipt Date: 20080201
  Transmission Date: 20080703
  Serious: Yes (Death, Hospitalization, Other)
  Sender: FDA-Public Use
  Company Number: MX-BRISTOL-MYERS SQUIBB COMPANY-14062749

PATIENT
  Age: 78 Year
  Sex: Male

DRUGS (4)
  1. ABATACEPT [Suspect]
     Indication: RHEUMATOID ARTHRITIS
     Dosage: 1 DOSAGE FORM= 500(UNIT IS NOT GIVEN)
     Route: 042
     Dates: start: 20030326
  2. PREDNISONE TAB [Concomitant]
     Dates: start: 20070719
  3. FOLIC ACID [Concomitant]
     Dates: start: 20050501
  4. KETOROLAC TROMETHAMINE [Concomitant]
     Dates: start: 20040719

REACTIONS (2)
  - DISSEMINATED TUBERCULOSIS [None]
  - RESPIRATORY FAILURE [None]
